FAERS Safety Report 14255308 (Version 1)
Quarter: 2017Q4

REPORT INFORMATION
  Report Type: Spontaneous
  Country: US (occurrence: US)
  Receive Date: 20171206
  Receipt Date: 20171206
  Transmission Date: 20180321
  Serious: Yes (Death)
  Sender: FDA-Public Use
  Company Number: US-FRESENIUS MEDICAL CARE RENAL THERAPIES GROUP-FMC-1712-001513

PATIENT
  Age: 67 Year
  Sex: Female

DRUGS (16)
  1. DELFLEX WITH DEXTROSE 2.5% LOW MAGNESIUM LOW CALCIUM [Suspect]
     Active Substance: CALCIUM CHLORIDE\DEXTROSE\MAGNESIUM CHLORIDE\SODIUM CHLORIDE\SODIUM LACTATE
     Indication: END STAGE RENAL DISEASE
     Route: 033
     Dates: start: 20150609, end: 20170910
  2. ASPRIN [Concomitant]
     Active Substance: ASPIRIN
     Route: 048
  3. FLUTICASONE. [Concomitant]
     Active Substance: FLUTICASONE
     Dosage: SPRAY TWO SPRAYS INTO BOTH NOSTRILS ONCE PER DAY.
     Route: 045
  4. INSULIN LISPRO [Concomitant]
     Active Substance: INSULIN LISPRO
     Dosage: SLIDING SCALE 1 TO 10 UNITS BASED ON CBG WITH MEALS.
  5. ALPHA LIPOIC ACID [Concomitant]
     Active Substance: .ALPHA.-LIPOIC ACID
     Route: 048
  6. LORATADINE. [Concomitant]
     Active Substance: LORATADINE
     Dosage: TAKE ONE TABLET BY MOUTH ONCE A DAY AS NEEDED FOR ALLERGIES.
     Route: 048
  7. INSULIN DETEMIR [Concomitant]
     Active Substance: INSULIN DETEMIR
     Dosage: 100 UNIT/ML (3 ML) INSULIN PEN.  INJECT 30 UNIT SUBCUTANEOUSLY EVERY EVENING AS DIRECTED
     Route: 058
  8. MINOXIDIL. [Concomitant]
     Active Substance: MINOXIDIL
     Route: 048
  9. PRAVASTATIN. [Concomitant]
     Active Substance: PRAVASTATIN
     Route: 048
  10. CALCIUM CARBONATE. [Concomitant]
     Active Substance: CALCIUM CARBONATE
     Dosage: TAKE 2-3 TABLET BY MOUTH THREE TIMES A DAY WITH MEALS
     Route: 048
  11. SODIUM BICARBONATE. [Concomitant]
     Active Substance: SODIUM BICARBONATE
     Route: 048
  12. CARVEDILOL. [Concomitant]
     Active Substance: CARVEDILOL
     Dosage: TAKE ONE TABLET BY MOUTH EVERY EVENING, TAKE 1/2 TABLET IN MORNING IF NEEDED
     Route: 048
  13. GENTAMICIN. [Concomitant]
     Active Substance: GENTAMICIN
     Route: 061
  14. SILDENAFIL. [Concomitant]
     Active Substance: SILDENAFIL
     Dosage: TAKE ONE TABLET BY MOUTH THREE TIMES A DAY AS NEEDED
     Route: 048
  15. CALCITRIOL. [Concomitant]
     Active Substance: CALCITRIOL
     Dosage: TAKE ONE 0.25 MCG CAPSULE PER MOUTH EVERY OTHER DAY.
     Route: 048
  16. LINACLOTIDE [Concomitant]
     Active Substance: LINACLOTIDE
     Dosage: TAKE ONE CAPSULE BY MOUTH AS NEEDED
     Route: 048

REACTIONS (1)
  - Cardiac arrest [Fatal]

NARRATIVE: CASE EVENT DATE: 20170910
